FAERS Safety Report 9921415 (Version 3)
Quarter: 2014Q1

REPORT INFORMATION
  Report Type: Report from Study
  Country: US (occurrence: US)
  Receive Date: 20140225
  Receipt Date: 20140321
  Transmission Date: 20141002
  Serious: Yes (Other)
  Sender: FDA-Public Use
  Company Number: PHEH2014US003572

PATIENT
  Age: 58 Year
  Sex: Female

DRUGS (2)
  1. TEGRETOL [Suspect]
     Dosage: 200 MG, UNK
     Route: 048
  2. TEGRETOL [Suspect]
     Dosage: 100 MG, UNK
     Route: 048

REACTIONS (2)
  - Grand mal convulsion [Unknown]
  - Paraesthesia [Unknown]
